FAERS Safety Report 4452314-7 (Version None)
Quarter: 2004Q3

REPORT INFORMATION
  Report Type: 
  Country: None (occurrence: None)
  Receive Date: 20040915
  Receipt Date: 20040909
  Transmission Date: 20050211
  Serious: Yes (Life-Threatening)
  Sender: FDA-Public Use
  Company Number: 2004CG01778

PATIENT
  Age: 78 Year
  Sex: Female
  Weight: 50 kg

DRUGS (8)
  1. ATACAND [Suspect]
     Indication: HYPERTENSION
     Dates: end: 20040812
  2. LEGALON [Suspect]
     Dates: end: 20040812
  3. LIPANTHYL ^FOURNIER^ [Suspect]
     Indication: HYPERCHOLESTEROLAEMIA
     Dates: end: 20040812
  4. PERFALGAN [Suspect]
     Indication: POST-TRAUMATIC HEADACHE
     Dosage: 1 G TID IV
     Route: 042
     Dates: start: 20040811, end: 20040812
  5. DOLIPRANE [Suspect]
     Indication: POST-TRAUMATIC HEADACHE
     Dosage: 1 G ONCE PO
     Route: 048
     Dates: start: 20040811, end: 20040811
  6. DI-ANTALVIC [Suspect]
     Indication: POST-TRAUMATIC HEADACHE
     Dosage: 2 DF ONCE PO
     Route: 048
     Dates: start: 20040811, end: 20040811
  7. DITROPAN /SCH/ [Suspect]
     Indication: URINARY INCONTINENCE
     Dates: end: 20040812
  8. QUESTRAN [Suspect]
     Indication: HYPERCHOLESTEROLAEMIA
     Dates: end: 20040812

REACTIONS (12)
  - AMMONIA INCREASED [None]
  - ASTERIXIS [None]
  - BLOOD CREATINE PHOSPHOKINASE INCREASED [None]
  - CREATININE RENAL CLEARANCE DECREASED [None]
  - FALL [None]
  - HEADACHE [None]
  - HEPATITIS FULMINANT [None]
  - HYPONATRAEMIA [None]
  - HYPOTENSION [None]
  - INTRACRANIAL INJURY [None]
  - SOMNOLENCE [None]
  - VOMITING [None]
